FAERS Safety Report 14480724 (Version 2)
Quarter: 2018Q1

REPORT INFORMATION
  Report Type: Spontaneous
  Country: JP (occurrence: JP)
  Receive Date: 20180202
  Receipt Date: 20180216
  Transmission Date: 20180509
  Serious: Yes (Hospitalization, Other)
  Sender: FDA-Public Use
  Company Number: JP-PFIZER INC-2018043076

PATIENT
  Age: 75 Year
  Sex: Male
  Weight: 46 kg

DRUGS (3)
  1. TOVIAZ [Suspect]
     Active Substance: FESOTERODINE FUMARATE
     Indication: HYPERTONIC BLADDER
     Dosage: 4 MG, DAILY
     Route: 048
     Dates: start: 20170512, end: 20180127
  2. URIEF [Concomitant]
     Active Substance: SILODOSIN
  3. TAMSULOSIN [Concomitant]
     Active Substance: TAMSULOSIN
     Indication: BENIGN PROSTATIC HYPERPLASIA
     Dosage: 0.2 MG, DAILY
     Route: 048
     Dates: start: 20170113

REACTIONS (2)
  - Urinary retention [Recovered/Resolved]
  - Kidney rupture [Recovered/Resolved]

NARRATIVE: CASE EVENT DATE: 20180127
